FAERS Safety Report 6980102-6 (Version None)
Quarter: 2010Q3

REPORT INFORMATION
  Report Type: 
  Country: None (occurrence: None)
  Receive Date: 20100909
  Receipt Date: 20100830
  Transmission Date: 20110219
  Serious: Yes (Hospitalization, Other)
  Sender: FDA-Public Use
  Company Number: 2010P1001242

PATIENT
  Age: 40 Year
  Sex: Male

DRUGS (3)
  1. AMITRIPTYLINE TABLET 10 MG (NO PREF. NAME) [Suspect]
     Dosage: 1.2 G;X1; PO  800 MG;X1;PO
     Route: 048
  2. OLANZAPINE [Suspect]
  3. ALIMEMAZINE (NO PREF. NAME) [Suspect]

REACTIONS (13)
  - ABDOMINAL DISCOMFORT [None]
  - ABDOMINAL TENDERNESS [None]
  - AGITATION [None]
  - ATELECTASIS [None]
  - ELECTROCARDIOGRAM ABNORMAL [None]
  - ELECTROCARDIOGRAM ST SEGMENT ELEVATION [None]
  - ELECTROCARDIOGRAM T WAVE INVERSION [None]
  - INTENTION TREMOR [None]
  - MULTIPLE DRUG OVERDOSE [None]
  - NYSTAGMUS [None]
  - SINUS TACHYCARDIA [None]
  - TACHYCARDIA [None]
  - TREMOR [None]
